FAERS Safety Report 14151642 (Version 2)
Quarter: 2017Q4

REPORT INFORMATION
  Report Type: Spontaneous
  Country: US (occurrence: US)
  Receive Date: 20171102
  Receipt Date: 20171129
  Transmission Date: 20180321
  Serious: Yes (Other)
  Sender: FDA-Public Use
  Company Number: US-ALVOGEN-2017-ALVOGEN-093911

PATIENT
  Age: 60 Year
  Sex: Female
  Weight: 48.99 kg

DRUGS (1)
  1. NITROFURANTOIN MONOHYDRATE MACROCRYSTALS [Suspect]
     Active Substance: NITROFURANTOIN\NITROFURANTOIN MONOHYDRATE
     Indication: CYSTITIS
     Dates: start: 20170711, end: 20170717

REACTIONS (11)
  - Chills [Unknown]
  - Skin burning sensation [Unknown]
  - Abdominal discomfort [Unknown]
  - Tinnitus [Not Recovered/Not Resolved]
  - Faeces discoloured [Unknown]
  - Urine abnormality [Unknown]
  - Dry eye [Unknown]
  - Fungal infection [Not Recovered/Not Resolved]
  - White blood cell count decreased [Unknown]
  - Headache [Unknown]
  - Drug dose omission [Unknown]
